FAERS Safety Report 8516272-8 (Version None)
Quarter: 2012Q3

REPORT INFORMATION
  Report Type: 
  Country: None (occurrence: None)
  Receive Date: 20120717
  Receipt Date: 20120713
  Transmission Date: 20120928
  Serious: Yes (Other)
  Sender: FDA-Public Use
  Company Number: CHPA2012US013121

PATIENT

DRUGS (3)
  1. ULTRAM [Concomitant]
     Indication: MULTIPLE SCLEROSIS
     Dosage: 50MG (NO MORE THAN 4DF/DAY, Q6H)
  2. VOLTAREN [Suspect]
     Indication: OSTEOARTHRITIS
     Dosage: 0.25 GRAM TO 2 GRAMS, PRN
     Route: 061
     Dates: start: 20111101
  3. MELOXICAM [Concomitant]
     Indication: INTERVERTEBRAL DISC DEGENERATION
     Dosage: 7.5MG AT NIGHT

REACTIONS (10)
  - VULVOVAGINAL PRURITUS [None]
  - VAGINAL DISCHARGE [None]
  - HAEMATINURIA [None]
  - URINE ANALYSIS ABNORMAL [None]
  - WRONG TECHNIQUE IN DRUG USAGE PROCESS [None]
  - DERMATITIS CONTACT [None]
  - URINARY TRACT INFECTION [None]
  - THERAPEUTIC RESPONSE UNEXPECTED [None]
  - DRUG ADMINISTERED AT INAPPROPRIATE SITE [None]
  - VAGINAL INFECTION [None]
